FAERS Safety Report 13163185 (Version 1)
Quarter: 2017Q1

REPORT INFORMATION
  Report Type: Spontaneous
  Country: JP (occurrence: JP)
  Receive Date: 20170130
  Receipt Date: 20170130
  Transmission Date: 20170428
  Serious: Yes (Hospitalization)
  Sender: FDA-Public Use
  Company Number: JP-009507513-1701JPN002131J

PATIENT

DRUGS (1)
  1. MENESIT TABLETS - 100 [Suspect]
     Active Substance: CARBIDOPA\LEVODOPA
     Dosage: 1 DF, UNK, DIVIDED INTO 3 TIMES
     Route: 048

REACTIONS (4)
  - Hallucination [Unknown]
  - Decreased appetite [Unknown]
  - Disease progression [Unknown]
  - Weight decreased [Unknown]
